FAERS Safety Report 18442974 (Version 4)
Quarter: 2020Q4

REPORT INFORMATION
  Report Type: Report from Study
  Country: None (occurrence: US)
  Receive Date: 20201030
  Receipt Date: 20201201
  Transmission Date: 20210114
  Serious: Yes (Other)
  Sender: FDA-Public Use
  Company Number: US-ABBVIE-20K-163-3300384-00

PATIENT
  Sex: Male
  Weight: 108.96 kg

DRUGS (2)
  1. HUMIRA [Suspect]
     Active Substance: ADALIMUMAB
     Indication: COLITIS ULCERATIVE
     Route: 058
     Dates: start: 2014
  2. HUMIRA [Suspect]
     Active Substance: ADALIMUMAB
     Indication: PSORIASIS
     Route: 058

REACTIONS (10)
  - Meniscus injury [Recovered/Resolved]
  - Diarrhoea [Unknown]
  - Joint range of motion decreased [Recovered/Resolved]
  - Prostate cancer [Not Recovered/Not Resolved]
  - Colitis [Recovered/Resolved]
  - Post procedural complication [Recovered/Resolved]
  - Pulmonary function test abnormal [Unknown]
  - Trigger finger [Recovered/Resolved]
  - Chronic obstructive pulmonary disease [Unknown]
  - Burning sensation [Recovered/Resolved]

NARRATIVE: CASE EVENT DATE: 2019
